FAERS Safety Report 8414991-5 (Version None)
Quarter: 2012Q2

REPORT INFORMATION
  Report Type: 
  Country: None (occurrence: None)
  Receive Date: 20120606
  Receipt Date: 20120305
  Transmission Date: 20120825
  Serious: No
  Sender: FDA-Public Use
  Company Number: US-GLAXOSMITHKLINE-A0968624A

PATIENT
  Age: 41 Year
  Sex: Female

DRUGS (3)
  1. LAMICTAL [Suspect]
     Indication: BIPOLAR DISORDER
     Dosage: 200MG PER DAY
     Route: 048
     Dates: start: 20090301
  2. ATIVAN [Concomitant]
  3. CLOZARIL [Concomitant]

REACTIONS (2)
  - LIP SWELLING [None]
  - RASH [None]
